FAERS Safety Report 10229212 (Version 2)
Quarter: 2016Q1

REPORT INFORMATION
  Report Type: Report from Study
  Country: US (occurrence: US)
  Receive Date: 20140611
  Receipt Date: 20160105
  Transmission Date: 20160525
  Serious: Yes (Hospitalization, Other)
  Sender: FDA-Public Use
  Company Number: US-ROCHE-1413086

PATIENT
  Age: 68 Year
  Sex: Female
  Weight: 67.19 kg

DRUGS (9)
  1. NEXIUM [Concomitant]
     Active Substance: ESOMEPRAZOLE MAGNESIUM
     Indication: BARRETT^S OESOPHAGUS
     Dosage: OR PROLISEC
     Route: 065
  2. RITUXAN [Suspect]
     Active Substance: RITUXIMAB
     Indication: RHEUMATOID ARTHRITIS
     Dosage: DAY 1 AND DAY 15, 1 2WKAPART X1
     Route: 042
     Dates: start: 20140429
  3. PRILOSEC [Concomitant]
     Active Substance: OMEPRAZOLE MAGNESIUM
     Indication: BARRETT^S OESOPHAGUS
     Dosage: OR NEXIUM
     Route: 065
  4. PROPANOLOL [Concomitant]
     Active Substance: PROPRANOLOL HYDROCHLORIDE
     Indication: HEART RATE
  5. PREDNISONE. [Concomitant]
     Active Substance: PREDNISONE
     Indication: RHEUMATOID ARTHRITIS
     Dosage: CUT BACK AND THEN DISCONTINUED, IV IN HOSPITAL
     Route: 042
     Dates: end: 201405
  6. LYRICA [Concomitant]
     Active Substance: PREGABALIN
     Route: 065
  7. RITUXAN [Suspect]
     Active Substance: RITUXIMAB
     Indication: POLYMYOSITIS
  8. PROPANOLOL [Concomitant]
     Active Substance: PROPRANOLOL HYDROCHLORIDE
     Indication: MIGRAINE
     Dosage: USALLY TAKES ONE AT NIGHT
     Route: 065
     Dates: start: 1991
  9. PROPANOLOL [Concomitant]
     Active Substance: PROPRANOLOL HYDROCHLORIDE
     Indication: MITRAL VALVE PROLAPSE

REACTIONS (16)
  - Diverticular perforation [Recovering/Resolving]
  - Asthenia [Not Recovered/Not Resolved]
  - Chest X-ray abnormal [Unknown]
  - Arthralgia [Not Recovered/Not Resolved]
  - Cardiac failure congestive [Recovering/Resolving]
  - Pain [Recovering/Resolving]
  - Blood pressure abnormal [Recovered/Resolved]
  - Blood pressure increased [Unknown]
  - Oral herpes [Unknown]
  - Paraesthesia oral [Unknown]
  - Insomnia [Unknown]
  - Wheezing [Recovered/Resolved]
  - Diverticulitis [Recovering/Resolving]
  - Intestinal perforation [Recovering/Resolving]
  - Therapeutic response decreased [Unknown]
  - Rash [Unknown]

NARRATIVE: CASE EVENT DATE: 201405
